FAERS Safety Report 5959897-6 (Version None)
Quarter: 2008Q4

REPORT INFORMATION
  Report Type: 
  Country: None (occurrence: None)
  Receive Date: 20081119
  Receipt Date: 20081119
  Transmission Date: 20090506
  Serious: Yes (Life-Threatening)
  Sender: FDA-Public Use
  Company Number: None

PATIENT
  Sex: Male
  Weight: 79 kg

DRUGS (1)
  1. REGULAR INSULIN [Suspect]
     Indication: TYPE 1 DIABETES MELLITUS
     Dosage: 20 UNITS 1800 BID SQ
     Route: 058
     Dates: end: 20080629

REACTIONS (5)
  - BLOOD GLUCOSE DECREASED [None]
  - CONVULSION [None]
  - DISORIENTATION [None]
  - HYPERHIDROSIS [None]
  - MOVEMENT DISORDER [None]
